FAERS Safety Report 5121879-4 (Version None)
Quarter: 2006Q4

REPORT INFORMATION
  Report Type: 
  Country: None (occurrence: None)
  Receive Date: 20061006
  Receipt Date: 20060221
  Transmission Date: 20070319
  Serious: Yes (Other)
  Sender: FDA-Public Use
  Company Number: JP-MERCK-0603USA01986

PATIENT
  Age: 8 Year
  Sex: Female
  Weight: 26 kg

DRUGS (6)
  1. SINGULAIR [Suspect]
     Indication: ASTHMA
     Route: 048
     Dates: start: 20060216, end: 20060217
  2. PACKERA AUREA [Concomitant]
     Indication: ASTHMA
     Route: 048
     Dates: start: 20060207, end: 20060217
  3. ETHYL CYSTEINE HYDROCHLORIDE [Concomitant]
     Indication: ASTHMA
     Route: 048
     Dates: start: 20060207, end: 20060217
  4. AMBROXOL HYDROCHLORIDE [Concomitant]
     Indication: ASTHMA
     Route: 048
     Dates: start: 20060207, end: 20060217
  5. TULOBUTEROL [Concomitant]
     Indication: ASTHMA
     Route: 061
     Dates: start: 20060207, end: 20060217
  6. INTAL [Concomitant]
     Indication: ASTHMA
     Route: 055
     Dates: start: 20060216, end: 20060217

REACTIONS (6)
  - ASTHENIA [None]
  - DIZZINESS [None]
  - HEADACHE [None]
  - NAUSEA [None]
  - PALLOR [None]
  - THIRST [None]
